FAERS Safety Report 9061381 (Version 1)
Quarter: 2013Q1

REPORT INFORMATION
  Report Type: Spontaneous
  Country: US (occurrence: US)
  Receive Date: 20130204
  Receipt Date: 20130204
  Transmission Date: 20140127
  Serious: Yes (Other)
  Sender: FDA-Public Use
  Company Number: US-COVIDIEN/TYCO HEALTHCARE/MALLINCKRODT-T201204565

PATIENT
  Sex: Male

DRUGS (3)
  1. GABLOFEN [Suspect]
     Indication: MUSCLE SPASTICITY
     Dosage: 99.4 MCG/DAY
  2. GABLOFEN [Suspect]
     Indication: PARAPARESIS
  3. ANTIBIOTICS [Concomitant]
     Indication: NASOPHARYNGITIS
     Dosage: UNK
     Dates: start: 201209, end: 201209

REACTIONS (4)
  - Clonus [Unknown]
  - Withdrawal syndrome [Unknown]
  - Agitation [Unknown]
  - Insomnia [Unknown]
